FAERS Safety Report 6708418-9 (Version None)
Quarter: 2010Q2

REPORT INFORMATION
  Report Type: 
  Country: None (occurrence: None)
  Receive Date: 20100503
  Receipt Date: 20090915
  Transmission Date: 20101027
  Serious: No
  Sender: FDA-Public Use
  Company Number: US-ASTRAZENECA-2009SE13677

PATIENT
  Age: 77 Year
  Sex: Female

DRUGS (8)
  1. NEXIUM [Suspect]
     Indication: DUODENAL ULCER
     Route: 048
     Dates: start: 20090910
  2. THYROID TAB [Concomitant]
  3. TYLENOL PM [Concomitant]
  4. ATENOLOL [Concomitant]
  5. LISINOPRIL [Concomitant]
  6. ZOCOR [Concomitant]
  7. EFFEXOR XR [Concomitant]
  8. DEPLIN [Concomitant]

REACTIONS (4)
  - DIARRHOEA [None]
  - HEADACHE [None]
  - NAUSEA [None]
  - VULVOVAGINAL BURNING SENSATION [None]
